FAERS Safety Report 12210953 (Version 1)
Quarter: 2016Q1

REPORT INFORMATION
  Report Type: Spontaneous
  Country: US (occurrence: None)
  Receive Date: 20160324
  Receipt Date: 20160324
  Transmission Date: 20160526
  Serious: No
  Sender: FDA-Public Use
  Company Number: None

PATIENT
  Age: 59 Year
  Sex: Male

DRUGS (2)
  1. IMANTINIB MESYLATE 400MG RANBAXY [Suspect]
     Active Substance: IMATINIB MESYLATE
     Indication: SOFT TISSUE SARCOMA
     Route: 048
     Dates: start: 20150813
  2. IMANTINIB MESYLATE 400MG RANBAXY [Suspect]
     Active Substance: IMATINIB MESYLATE
     Indication: CONNECTIVE TISSUE NEOPLASM
     Route: 048
     Dates: start: 20150813

REACTIONS (1)
  - Amnesia [None]

NARRATIVE: CASE EVENT DATE: 20160115
